FAERS Safety Report 8834070 (Version 1)
Quarter: 2012Q4

REPORT INFORMATION
  Report Type: 
  Country: US (occurrence: US)
  Receive Date: 20121010
  Receipt Date: 20121010
  Transmission Date: 20130627
  Serious: Yes (Other)
  Sender: FDA-Public Use
  Company Number: US-FRI-1000039265

PATIENT
  Age: 64 Year
  Sex: Female

DRUGS (7)
  1. BYSTOLIC [Suspect]
     Indication: HYPERTENSION
     Dosage: 5 mg
     Route: 048
  2. BYSTOLIC [Suspect]
     Dosage: 2.5 MG
     Route: 048
  3. DILTIAZEM [Concomitant]
     Indication: HYPERTENSION
  4. FLECAINIDE [Concomitant]
     Indication: HYPERTENSION
  5. NEXIUM [Concomitant]
  6. SYNTHROID [Concomitant]
     Indication: HYPOTHYROIDISM
  7. FISH OIL [Concomitant]

REACTIONS (5)
  - Rosacea [Not Recovered/Not Resolved]
  - Dermatitis [Not Recovered/Not Resolved]
  - Erythema [Not Recovered/Not Resolved]
  - Insomnia [Recovered/Resolved]
  - Loss of consciousness [Recovered/Resolved]
